FAERS Safety Report 9671178 (Version 2)
Quarter: 2013Q4

REPORT INFORMATION
  Report Type: Spontaneous
  Country: IT (occurrence: IT)
  Receive Date: 20131106
  Receipt Date: 20131126
  Transmission Date: 20140711
  Serious: Yes (Hospitalization)
  Sender: FDA-Public Use
  Company Number: IT-TEVA-440538ISR

PATIENT
  Age: 83 Year
  Sex: Female

DRUGS (11)
  1. LEVOFLOXACINA [Suspect]
     Indication: LUNG INFECTION
     Dosage: 500 MILLIGRAM DAILY;
     Route: 048
     Dates: start: 20130914, end: 20130924
  2. MICARDIS 40MG [Concomitant]
     Dates: start: 20120101, end: 20131010
  3. KEPPRA 500MG [Concomitant]
     Dates: start: 20120101, end: 20131010
  4. CATAPRESAN TTS 2.5MG [Concomitant]
     Dates: start: 20120101, end: 20131010
  5. TIKLID 250MG [Concomitant]
     Dates: start: 20120101, end: 20131010
  6. FOSTER [Concomitant]
     Dates: start: 20120101, end: 20131010
  7. ZANEDIP 10MG [Concomitant]
     Dates: start: 20120101, end: 20131010
  8. LEXOTAN 2.5MG/ML [Concomitant]
     Dates: start: 20120101, end: 20131010
  9. ENALAPRIL MALEATO [Concomitant]
     Dates: start: 20120101, end: 20131010
  10. OMEPRAZOLO [Concomitant]
     Dates: start: 20120101, end: 20131010
  11. ALLOPURNOLO [Concomitant]
     Dates: start: 20120101, end: 20130924

REACTIONS (1)
  - Acute generalised exanthematous pustulosis [Recovered/Resolved]
